FAERS Safety Report 5095429-5 (Version None)
Quarter: 2006Q3

REPORT INFORMATION
  Report Type: 
  Country: None (occurrence: None)
  Receive Date: 20060901
  Receipt Date: 20060823
  Transmission Date: 20061208
  Serious: Yes (Other)
  Sender: FDA-Public Use
  Company Number: BR-ROCHE-460811

PATIENT
  Age: 40 Year
  Sex: Male

DRUGS (6)
  1. FUZEON [Suspect]
     Route: 058
     Dates: start: 20060328, end: 20060815
  2. TENOFOVIR [Concomitant]
     Dates: start: 20060328, end: 20060815
  3. LAMIVUDINE [Concomitant]
     Dates: start: 20060328, end: 20060815
  4. AMPRENAVIR [Concomitant]
     Dates: start: 20060328, end: 20060815
  5. EFAVIRENZ [Concomitant]
     Dates: start: 20060328, end: 20060815
  6. SAQUINAVIR [Concomitant]
     Dates: start: 20060328, end: 20060815

REACTIONS (5)
  - ASTHENIA [None]
  - BLOOD CREATINE PHOSPHOKINASE INCREASED [None]
  - BLOOD LACTIC ACID INCREASED [None]
  - MUSCULAR WEAKNESS [None]
  - TRANSAMINASES INCREASED [None]
